FAERS Safety Report 15747281 (Version 1)
Quarter: 2018Q4

REPORT INFORMATION
  Report Type: Spontaneous
  Country: US (occurrence: US)
  Receive Date: 20181220
  Receipt Date: 20181220
  Transmission Date: 20190205
  Serious: No
  Sender: FDA-Public Use
  Company Number: US-AVADEL SPECIALTY PHARMACEUTICALS, LLC-2018AVA00372

PATIENT
  Age: 82 Year
  Sex: Male
  Weight: 117.01 kg

DRUGS (9)
  1. SIMVASTATIN. [Concomitant]
     Active Substance: SIMVASTATIN
  2. VITAMIN B12 [Concomitant]
     Active Substance: CYANOCOBALAMIN
  3. COD LIVER OIL [Concomitant]
     Active Substance: COD LIVER OIL
  4. MAGNESIUM [Concomitant]
     Active Substance: MAGNESIUM
  5. LOSARTAN. [Concomitant]
     Active Substance: LOSARTAN
  6. VITAMIN D3 [Concomitant]
     Active Substance: CHOLECALCIFEROL
  7. NOCTIVA [Suspect]
     Active Substance: DESMOPRESSIN ACETATE
     Indication: NOCTURIA
     Dosage: 0.83 ?G, 1X/DAY 30 MINUTES BEFORE BEDTIME
     Route: 045
     Dates: start: 20180916
  8. DULOXETINE. [Concomitant]
     Active Substance: DULOXETINE
  9. OMEPRAZOLE. [Concomitant]
     Active Substance: OMEPRAZOLE

REACTIONS (3)
  - Nasal discomfort [Not Recovered/Not Resolved]
  - Initial insomnia [Unknown]
  - Nasal congestion [Recovered/Resolved]

NARRATIVE: CASE EVENT DATE: 20180916
